FAERS Safety Report 12972070 (Version 2)
Quarter: 2017Q1

REPORT INFORMATION
  Report Type: Spontaneous
  Country: JP (occurrence: JP)
  Receive Date: 20161124
  Receipt Date: 20170106
  Transmission Date: 20170428
  Serious: No
  Sender: FDA-Public Use
  Company Number: JP-ROCHE-1857377

PATIENT
  Age: 35 Year
  Sex: Male

DRUGS (2)
  1. CEFTRIAXONE. [Suspect]
     Active Substance: CEFTRIAXONE
     Indication: SKIN INFECTION
     Dosage: DOSAGE IS UNCERTAIN.
     Route: 042
  2. VANCOMYCIN [Suspect]
     Active Substance: VANCOMYCIN
     Indication: SKIN INFECTION
     Route: 065

REACTIONS (2)
  - Renal impairment [Unknown]
  - Reactive perforating collagenosis [Unknown]
